FAERS Safety Report 9162835 (Version 1)
Quarter: 2013Q1

REPORT INFORMATION
  Report Type: Spontaneous
  Country: US (occurrence: None)
  Receive Date: 20130227
  Receipt Date: 20130227
  Transmission Date: 20140127
  Serious: Yes (Other)
  Sender: FDA-Public Use
  Company Number: AUR-APL-2013-01672

PATIENT
  Sex: 0

DRUGS (5)
  1. ZIDOVUDINE [Suspect]
     Indication: PROPHYLAXIS AGAINST HIV INFECTION
  2. ZIDOVUDINE [Suspect]
     Indication: PROPHYLAXIS AGAINST HIV INFECTION
  3. ZIDOVUDINE [Suspect]
     Indication: PROPHYLAXIS AGAINST HIV INFECTION
  4. NEVIRAPINE [Suspect]
  5. LAMIVUDINE [Suspect]

REACTIONS (6)
  - Maternal drugs affecting foetus [None]
  - Caesarean section [None]
  - Neutropenia [None]
  - Anaemia [None]
  - False negative investigation result [None]
  - HIV infection [None]
